FAERS Safety Report 22531679 (Version 1)
Quarter: 2023Q2

REPORT INFORMATION
  Report Type: Spontaneous
  Country: US (occurrence: US)
  Receive Date: 20230607
  Receipt Date: 20230607
  Transmission Date: 20230722
  Serious: Yes (Life-Threatening, Hospitalization)
  Sender: FDA-Public Use
  Company Number: US-drreddys-LIT/USA/23/0166273

PATIENT
  Age: 27 Year

DRUGS (2)
  1. ESTRADIOL CYPIONATE [Suspect]
     Active Substance: ESTRADIOL CYPIONATE
     Indication: Transgender hormonal therapy
  2. CYPROTERONE [Suspect]
     Active Substance: CYPROTERONE
     Indication: Transgender hormonal therapy

REACTIONS (7)
  - Acute hepatic failure [Unknown]
  - Haematemesis [Unknown]
  - Spontaneous bacterial peritonitis [Unknown]
  - Intestinal pseudo-obstruction [Unknown]
  - Renal tubular necrosis [Unknown]
  - Drug-induced liver injury [Unknown]
  - Intentional product misuse [Unknown]
